FAERS Safety Report 7971242-3 (Version None)
Quarter: 2011Q4

REPORT INFORMATION
  Report Type: 
  Country: None (occurrence: None)
  Receive Date: 20111212
  Receipt Date: 20111208
  Transmission Date: 20120403
  Serious: Yes (Death)
  Sender: FDA-Public Use
  Company Number: EG-PFIZER INC-2011172339

PATIENT
  Age: 50 Year
  Sex: Female

DRUGS (1)
  1. TYGACIL [Suspect]
     Indication: PNEUMONIA
     Dosage: 100 MG, 1X/DAY
     Route: 042

REACTIONS (1)
  - THROMBOCYTOPENIA [None]
